FAERS Safety Report 8734699 (Version 2)
Quarter: 2012Q4

REPORT INFORMATION
  Report Type: 
  Country: EC (occurrence: EC)
  Receive Date: 20120821
  Receipt Date: 20120914
  Transmission Date: 20130627
  Serious: Yes (Hospitalization, Other)
  Sender: FDA-Public Use
  Company Number: PHHY2012EC025179

PATIENT
  Age: 71 Year
  Sex: Female

DRUGS (1)
  1. EXFORGE [Suspect]
     Indication: HYPERTENSION
     Dosage: 1 tablet (160 mg vals and 5 mg amlo), daily
     Route: 048
     Dates: start: 20100125

REACTIONS (6)
  - Ankle fracture [Recovering/Resolving]
  - Accident [Recovering/Resolving]
  - Bronchitis [Recovered/Resolved]
  - Cough [Recovered/Resolved]
  - Feeling abnormal [Not Recovered/Not Resolved]
  - Influenza [Not Recovered/Not Resolved]
